FAERS Safety Report 16220622 (Version 1)
Quarter: 2019Q2

REPORT INFORMATION
  Report Type: Report from Study
  Country: US (occurrence: US)
  Receive Date: 20190421
  Receipt Date: 20190421
  Transmission Date: 20190711
  Serious: Yes (Death, Life-Threatening, Hospitalization)
  Sender: FDA-Public Use
  Company Number: US-TORRENT-00008126

PATIENT
  Age: 50 Year
  Sex: Female

DRUGS (1)
  1. AMLODIPINE [Suspect]
     Active Substance: AMLODIPINE BESYLATE
     Indication: PRODUCT USED FOR UNKNOWN INDICATION
     Dosage: 90 TABLETS
     Route: 048

REACTIONS (11)
  - Lactic acidosis [Unknown]
  - Pulmonary embolism [Unknown]
  - Intentional overdose [Fatal]
  - Toxicity to various agents [Fatal]
  - Completed suicide [Fatal]
  - Respiratory distress [Unknown]
  - Acute kidney injury [Unknown]
  - Hypotension [Unknown]
  - Hypoglycaemia [Unknown]
  - Unresponsive to stimuli [Unknown]
  - Intestinal perforation [Unknown]
